FAERS Safety Report 7889052-4 (Version None)
Quarter: 2011Q4

REPORT INFORMATION
  Report Type: 
  Country: None (occurrence: None)
  Receive Date: 20111103
  Receipt Date: 20111026
  Transmission Date: 20120403
  Serious: No
  Sender: FDA-Public Use
  Company Number: US-B.I. PHARMACEUTICALS,INC./RIDGEFIELD-2011-BP-25211BP

PATIENT
  Sex: Male
  Weight: 93.2 kg

DRUGS (4)
  1. LIPITOR [Suspect]
     Indication: BLOOD CHOLESTEROL INCREASED
     Dosage: 40 MG
     Dates: start: 20110903
  2. LISINOPRIL [Suspect]
     Indication: HYPERTENSION
     Dosage: 10 MG
  3. PRADAXA [Suspect]
     Indication: ANTICOAGULANT THERAPY
  4. LIPITOR [Suspect]
     Indication: LOW DENSITY LIPOPROTEIN INCREASED

REACTIONS (1)
  - PAIN [None]
